FAERS Safety Report 4898330-2 (Version None)
Quarter: 2006Q1

REPORT INFORMATION
  Report Type: 
  Country: None (occurrence: None)
  Receive Date: 20060127
  Receipt Date: 20060112
  Transmission Date: 20060701
  Serious: Yes (Hospitalization)
  Sender: FDA-Public Use
  Company Number: US200511000073

PATIENT
  Age: 79 Year
  Sex: Female
  Weight: 61.2 kg

DRUGS (8)
  1. FORTEO [Suspect]
     Indication: OSTEOPOROSIS
     Dosage: SEE IMAGE
     Dates: start: 20050501
  2. FORTEO [Concomitant]
  3. CALCIUM (CALCIUM) [Concomitant]
  4. WARFARIN SODIUM [Concomitant]
  5. ASPIRIN [Concomitant]
  6. POTASSIUM (POTASSIUM) [Concomitant]
  7. CELEBREX [Concomitant]
  8. DARVOCET-N 100 [Concomitant]

REACTIONS (4)
  - BLOOD CALCIUM INCREASED [None]
  - FALL [None]
  - PELVIC FRACTURE [None]
  - PHARMACEUTICAL PRODUCT COMPLAINT [None]
